FAERS Safety Report 21379204 (Version 1)
Quarter: 2022Q3

REPORT INFORMATION
  Report Type: Report from Study
  Country: IL (occurrence: IL)
  Receive Date: 20220927
  Receipt Date: 20220927
  Transmission Date: 20221026
  Serious: Yes (Other)
  Sender: FDA-Public Use
  Company Number: IL-ABBVIE-4130457

PATIENT
  Sex: Male

DRUGS (1)
  1. SKYRIZI [Suspect]
     Active Substance: RISANKIZUMAB-RZAA
     Indication: Psoriasis
     Route: 058
     Dates: start: 20220622

REACTIONS (3)
  - Pancreatic neoplasm [Not Recovered/Not Resolved]
  - Abdominal discomfort [Unknown]
  - Swelling [Unknown]

NARRATIVE: CASE EVENT DATE: 20220101
